FAERS Safety Report 7767181-3 (Version None)
Quarter: 2011Q3

REPORT INFORMATION
  Report Type: 
  Country: None (occurrence: None)
  Receive Date: 20110922
  Receipt Date: 20100820
  Transmission Date: 20111222
  Serious: No
  Sender: FDA-Public Use
  Company Number: US-ASTRAZENECA-2010SE39264

PATIENT
  Age: 45 Year
  Sex: Female

DRUGS (4)
  1. RESPERIDONE [Concomitant]
  2. CITALOPRAM HYDROBROMIDE [Concomitant]
  3. SEROQUEL XR [Suspect]
     Indication: DEPRESSION
     Route: 048
     Dates: start: 20090101, end: 20100601
  4. TRAZODONE HCL [Concomitant]

REACTIONS (4)
  - ANXIETY [None]
  - AGGRESSION [None]
  - AGITATION [None]
  - DRUG DOSE OMISSION [None]
